FAERS Safety Report 14861540 (Version 3)
Quarter: 2018Q3

REPORT INFORMATION
  Report Type: Spontaneous
  Country: US (occurrence: US)
  Receive Date: 20180508
  Receipt Date: 20180709
  Transmission Date: 20181010
  Serious: No
  Sender: FDA-Public Use
  Company Number: US-ELI_LILLY_AND_COMPANY-US201804014709

PATIENT
  Age: 58 Year
  Sex: Female

DRUGS (13)
  1. AMBRISENTAN [Suspect]
     Active Substance: AMBRISENTAN
     Indication: PULMONARY HYPERTENSION
     Dosage: 5 MG, DAILY
     Route: 065
     Dates: start: 20180329
  2. METFORMIN [Concomitant]
     Active Substance: METFORMIN HYDROCHLORIDE
  3. ADCIRCA [Suspect]
     Active Substance: TADALAFIL
     Indication: PULMONARY HYPERTENSION
     Dosage: 40 MG, DAILY
     Route: 065
     Dates: start: 20180309
  4. AMBRISENTAN [Suspect]
     Active Substance: AMBRISENTAN
     Dosage: 10 MG, DAILY
     Route: 065
     Dates: start: 20180329
  5. ALDACTONE [Concomitant]
     Active Substance: SPIRONOLACTONE
  6. SENNA                              /00142201/ [Concomitant]
     Active Substance: SENNA LEAF
  7. REMODULIN [Concomitant]
     Active Substance: TREPROSTINIL
  8. LIPITOR [Concomitant]
     Active Substance: ATORVASTATIN CALCIUM
  9. MELATONIN [Concomitant]
     Active Substance: MELATONIN
  10. CLARITIN [Concomitant]
     Active Substance: LORATADINE
  11. LASIX [Concomitant]
     Active Substance: FUROSEMIDE
  12. PREDNISONE. [Concomitant]
     Active Substance: PREDNISONE
  13. PEPCID                             /00305201/ [Concomitant]
     Active Substance: ALUMINUM HYDROXIDE\MAGNESIUM CARBONATE

REACTIONS (5)
  - Cough [Not Recovered/Not Resolved]
  - Wheezing [Not Recovered/Not Resolved]
  - Ear congestion [Unknown]
  - Middle ear effusion [Unknown]
  - Upper respiratory tract infection [Recovered/Resolved]

NARRATIVE: CASE EVENT DATE: 20180516
